FAERS Safety Report 9519220 (Version 1)
Quarter: 2013Q3

REPORT INFORMATION
  Report Type: Spontaneous
  Country: GB (occurrence: GB)
  Receive Date: 20130912
  Receipt Date: 20130912
  Transmission Date: 20140515
  Serious: Yes (Hospitalization)
  Sender: FDA-Public Use
  Company Number: GB-ASTRAZENECA-2013SE67028

PATIENT
  Age: 8 Year
  Sex: Male
  Weight: 33.3 kg

DRUGS (6)
  1. LIDOCAINE [Suspect]
     Indication: PRODUCT USED FOR UNKNOWN INDICATION
     Route: 065
  2. HUMIRA [Suspect]
     Indication: CROHN^S DISEASE
     Route: 058
  3. METOPROLOL [Concomitant]
     Indication: HYPERTENSION
     Route: 048
  4. OMEPRAZOLE [Concomitant]
     Indication: GASTRITIS
     Route: 048
  5. PREDNISOLONE [Concomitant]
     Indication: CROHN^S DISEASE
     Route: 048
  6. TRAMADOL [Concomitant]
     Indication: PAIN
     Dosage: AS NECESSARY

REACTIONS (3)
  - Immunodeficiency [Unknown]
  - Wrong technique in drug usage process [Unknown]
  - Drug effect decreased [Unknown]
